FAERS Safety Report 7179626-0 (Version None)
Quarter: 2010Q4

REPORT INFORMATION
  Report Type: 
  Country: None (occurrence: None)
  Receive Date: 20101221
  Receipt Date: 20100401
  Transmission Date: 20110411
  Serious: Yes (Hospitalization)
  Sender: FDA-Public Use
  Company Number: FR-ROCHE-694926

PATIENT
  Sex: Female

DRUGS (7)
  1. KYTRIL [Suspect]
     Indication: PREMEDICATION
     Dosage: STRENGTH: 3 MG/3ML INJECTABLE SOLUTION
     Route: 042
     Dates: start: 20100223, end: 20100223
  2. EPIRUBICIN [Suspect]
     Indication: BREAST CANCER
     Dosage: ROUTE: INFUSION
     Route: 042
     Dates: start: 20100223, end: 20100223
  3. ENDOXAN [Suspect]
     Indication: BREAST CANCER
     Dosage: ROUTE: INFUSION
     Route: 042
     Dates: start: 20100223, end: 20100223
  4. FLUOROURACIL [Suspect]
     Indication: BREAST CANCER
     Dosage: ROUTE REPORTED AS : INFUSION
     Route: 042
     Dates: start: 20100223, end: 20100223
  5. METHYLPREDNISOLONE [Suspect]
     Indication: PREMEDICATION
     Route: 042
     Dates: start: 20100223, end: 20100223
  6. EMEND [Concomitant]
     Indication: PREMEDICATION
     Route: 048
     Dates: start: 20100224, end: 20100225
  7. FOSAPREPITANT [Concomitant]
     Indication: PREMEDICATION
     Route: 042
     Dates: start: 20100223, end: 20100223

REACTIONS (6)
  - EYELID PTOSIS [None]
  - HEADACHE [None]
  - IIIRD NERVE PARALYSIS [None]
  - MYDRIASIS [None]
  - NAUSEA [None]
  - TINNITUS [None]
